FAERS Safety Report 10043439 (Version 3)
Quarter: 2014Q2

REPORT INFORMATION
  Report Type: Spontaneous
  Country: US (occurrence: US)
  Receive Date: 20140328
  Receipt Date: 20140506
  Transmission Date: 20141212
  Serious: Yes (Other)
  Sender: FDA-Public Use
  Company Number: US-PFIZER INC-2014084432

PATIENT
  Sex: Male

DRUGS (1)
  1. VIAGRA [Suspect]
     Indication: ERECTILE DYSFUNCTION
     Dosage: UNK

REACTIONS (4)
  - Suspected counterfeit product [Unknown]
  - Prostate infection [Unknown]
  - Testicular pain [Unknown]
  - Ejaculation disorder [Unknown]
